FAERS Safety Report 12671314 (Version 1)
Quarter: 2016Q3

REPORT INFORMATION
  Report Type: Spontaneous
  Country: US (occurrence: US)
  Receive Date: 20160822
  Receipt Date: 20160822
  Transmission Date: 20161109
  Serious: No
  Sender: FDA-Public Use
  Company Number: US-TEVA-654945USA

PATIENT
  Sex: Female
  Weight: 51.25 kg

DRUGS (7)
  1. FEXOFENADINE [Suspect]
     Active Substance: FEXOFENADINE\FEXOFENADINE HYDROCHLORIDE
     Indication: RHINORRHOEA
  2. FEXOFENADINE [Suspect]
     Active Substance: FEXOFENADINE\FEXOFENADINE HYDROCHLORIDE
     Indication: LACRIMATION INCREASED
     Dosage: 180 MILLIGRAM DAILY;
     Route: 048
     Dates: start: 20160416
  3. EFFEXOR [Concomitant]
     Active Substance: VENLAFAXINE HYDROCHLORIDE
  4. FEXOFENADINE [Suspect]
     Active Substance: FEXOFENADINE\FEXOFENADINE HYDROCHLORIDE
     Indication: SNEEZING
  5. AMBIEN [Concomitant]
     Active Substance: ZOLPIDEM TARTRATE
  6. IBUPROFEN. [Concomitant]
     Active Substance: IBUPROFEN
  7. KLONOPIN [Concomitant]
     Active Substance: CLONAZEPAM

REACTIONS (1)
  - Drug ineffective [Unknown]
